FAERS Safety Report 8176139-4 (Version None)
Quarter: 2012Q1

REPORT INFORMATION
  Report Type: 
  Country: None (occurrence: None)
  Receive Date: 20120228
  Receipt Date: 20120214
  Transmission Date: 20120608
  Serious: Yes (Hospitalization)
  Sender: FDA-Public Use
  Company Number: DSM-2012-00180

PATIENT
  Age: 73 Year
  Sex: Female

DRUGS (4)
  1. BISOPROLOL FUMARATE [Suspect]
     Indication: HYPERTENSION
     Dosage: 10 MG, ORAL
     Route: 048
     Dates: start: 20090101, end: 20111212
  2. PLAUNAZIDE (HYDROCHLOROTHIAZIDE, OLMESARTAN MEDOXOMIL) (TABLET) (HYDRO [Suspect]
     Indication: HYPERTENSION
     Dosage: 20/25 MG (1 IN 1 D), ORAL
     Route: 048
     Dates: start: 20090101, end: 20111212
  3. CARDURA(DOXAZOSIN MESILATE) TABLETS(DOXAZOSIN MESILATE) [Suspect]
     Indication: HYPERTENSION
     Dosage: 2 MG, ORAL, 4 MG, ORAL
     Route: 048
     Dates: start: 20090101, end: 20111212
  4. CARDURA(DOXAZOSIN MESILATE) TABLETS(DOXAZOSIN MESILATE) [Suspect]
     Indication: HYPERTENSION
     Dosage: 2 MG, ORAL, 4 MG, ORAL
     Route: 048
     Dates: start: 20111212

REACTIONS (3)
  - HYPERTENSION [None]
  - DRUG INEFFECTIVE [None]
  - HEADACHE [None]
